FAERS Safety Report 7680514-1 (Version None)
Quarter: 2011Q3

REPORT INFORMATION
  Report Type: 
  Country: None (occurrence: None)
  Receive Date: 20110812
  Receipt Date: 20110801
  Transmission Date: 20111222
  Serious: Yes (Hospitalization)
  Sender: FDA-Public Use
  Company Number: US-JNJFOC-20100800458

PATIENT
  Sex: Female
  Weight: 54.7 kg

DRUGS (4)
  1. INFLIXIMAB, RECOMBINANT [Suspect]
     Indication: CROHN'S DISEASE
     Dosage: RECEIVED 17 INFUSIONS
     Route: 042
     Dates: start: 20050812, end: 20071006
  2. INFLIXIMAB, RECOMBINANT [Suspect]
     Indication: INFLAMMATORY BOWEL DISEASE
     Dosage: RECEIVED 17 INFUSIONS
     Route: 042
     Dates: start: 20050812, end: 20071006
  3. LYRICA [Concomitant]
  4. HUMIRA [Concomitant]

REACTIONS (5)
  - ABDOMINAL PAIN [None]
  - DIARRHOEA [None]
  - HAEMORRHAGE [None]
  - HYPOPHAGIA [None]
  - VOMITING [None]
